FAERS Safety Report 5072020-8 (Version None)
Quarter: 2006Q3

REPORT INFORMATION
  Report Type: 
  Country: None (occurrence: None)
  Receive Date: 20060714
  Receipt Date: 20060526
  Transmission Date: 20061208
  Serious: No
  Sender: FDA-Public Use
  Company Number: 2006SP002232

PATIENT
  Age: 77 Year
  Sex: Female
  Weight: 61.2356 kg

DRUGS (9)
  1. LUNESTA [Suspect]
     Indication: INSOMNIA
     Dosage: SEE IMAGE
     Route: 048
     Dates: start: 20060519, end: 20060529
  2. LUNESTA [Suspect]
     Indication: INSOMNIA
     Dosage: SEE IMAGE
     Route: 048
     Dates: start: 20060530
  3. PAXIL [Concomitant]
  4. TENORMIN [Concomitant]
  5. CARDIZEM [Concomitant]
  6. DIAZEM [Concomitant]
  7. BACTRIM [Concomitant]
  8. CIPROFLOXACIN [Concomitant]
  9. TYLENOL (CAPLET) [Concomitant]

REACTIONS (5)
  - COUGH [None]
  - DYSGEUSIA [None]
  - HEART RATE INCREASED [None]
  - NAUSEA [None]
  - THROAT IRRITATION [None]
